FAERS Safety Report 7785681-7 (Version None)
Quarter: 2011Q3

REPORT INFORMATION
  Report Type: 
  Country: None (occurrence: None)
  Receive Date: 20110929
  Receipt Date: 20110929
  Transmission Date: 20111222
  Serious: Yes (Other)
  Sender: FDA-Public Use
  Company Number: None

PATIENT
  Age: 33 Year
  Sex: Female
  Weight: 86.182 kg

DRUGS (1)
  1. PROPAFENONE HCL [Suspect]
     Indication: PALPITATIONS
     Dosage: 225MG
     Route: 048
     Dates: start: 20110919, end: 20110927

REACTIONS (4)
  - PRODUCT SUBSTITUTION ISSUE [None]
  - NAUSEA [None]
  - DIARRHOEA [None]
  - DRUG INEFFECTIVE [None]
